FAERS Safety Report 10424450 (Version 1)
Quarter: 2014Q3

REPORT INFORMATION
  Report Type: Spontaneous
  Country: US (occurrence: US)
  Receive Date: 20140902
  Receipt Date: 20140902
  Transmission Date: 20150326
  Serious: Yes (Hospitalization)
  Sender: FDA-Public Use
  Company Number: US-PFIZER INC-2014238874

PATIENT
  Age: 74 Year
  Sex: Female

DRUGS (1)
  1. XALKORI [Suspect]
     Active Substance: CRIZOTINIB
     Indication: TRACHEAL CANCER
     Dosage: 250 MG, 2X/DAY
     Dates: start: 20140725

REACTIONS (2)
  - Pyrexia [Unknown]
  - Off label use [Unknown]
